FAERS Safety Report 19670286 (Version 1)
Quarter: 2021Q3

REPORT INFORMATION
  Report Type: Spontaneous
  Country: US (occurrence: US)
  Receive Date: 20210806
  Receipt Date: 20210806
  Transmission Date: 20211014
  Serious: Yes (Other)
  Sender: FDA-Public Use
  Company Number: US-SAOL THERAPEUTICS-2020SAO00417

PATIENT
  Age: 18 Year
  Weight: 71 kg

DRUGS (6)
  1. LIORESAL [Suspect]
     Active Substance: BACLOFEN
     Dosage: 650 ?G, \DAY
     Route: 037
     Dates: start: 202008
  2. LIORESAL [Suspect]
     Active Substance: BACLOFEN
     Indication: MUSCLE SPASTICITY
     Dosage: 650 ?G, \DAY
     Route: 037
     Dates: end: 20200828
  3. LIORESAL [Suspect]
     Active Substance: BACLOFEN
     Indication: CEREBRAL PALSY
     Dosage: UNK; PRGRAMMED A 20% INCREASE
     Dates: start: 20200828, end: 20200830
  4. LIORESAL [Suspect]
     Active Substance: BACLOFEN
     Dosage: 96 ?G, \DAY
     Route: 037
     Dates: start: 20200830, end: 202008
  5. GABLOFEN [Suspect]
     Active Substance: BACLOFEN
     Indication: MUSCLE SPASTICITY
     Dosage: 300.1 ?G, \DAY
     Route: 037
  6. GABLOFEN [Suspect]
     Active Substance: BACLOFEN
     Indication: CEREBRAL PALSY

REACTIONS (5)
  - Drug withdrawal syndrome [Unknown]
  - Therapeutic response decreased [Unknown]
  - Device infusion issue [Unknown]
  - Overdose [Unknown]
  - Granuloma [Recovered/Resolved]

NARRATIVE: CASE EVENT DATE: 202008
